FAERS Safety Report 10735251 (Version 4)
Quarter: 2015Q4

REPORT INFORMATION
  Report Type: Spontaneous
  Country: US (occurrence: US)
  Receive Date: 20150125
  Receipt Date: 20151002
  Transmission Date: 20160304
  Serious: No
  Sender: FDA-Public Use
  Company Number: US-009507513-1207USA00111

PATIENT
  Sex: Male

DRUGS (1)
  1. PROPECIA [Suspect]
     Active Substance: FINASTERIDE
     Indication: ALOPECIA
     Dosage: 1 MG, QD
     Route: 048
     Dates: start: 20090731, end: 20100512

REACTIONS (8)
  - Sexual dysfunction [Not Recovered/Not Resolved]
  - Headache [Unknown]
  - Circadian rhythm sleep disorder [Unknown]
  - Cognitive disorder [Not Recovered/Not Resolved]
  - Musculoskeletal pain [Unknown]
  - Shoulder operation [Unknown]
  - Erectile dysfunction [Unknown]
  - Anxiety [Unknown]

NARRATIVE: CASE EVENT DATE: 2009
